FAERS Safety Report 5639089-0 (Version None)
Quarter: 2008Q1

REPORT INFORMATION
  Report Type: 
  Country: None (occurrence: None)
  Receive Date: 20080222
  Receipt Date: 20080215
  Transmission Date: 20080703
  Serious: Yes (Death, Life-Threatening, Hospitalization, Other)
  Sender: FDA-Public Use
  Company Number: 151-C5013-07071351

PATIENT
  Age: 72 Year
  Sex: Male
  Weight: 70 kg

DRUGS (4)
  1. CC-5013   (LENALIDOMIDE) [Suspect]
     Indication: MYELODYSPLASTIC SYNDROME
     Dosage: 10 MG, DAILY, ORAL
     Route: 048
     Dates: start: 20070719, end: 20070803
  2. FOLIC ACID [Concomitant]
  3. TRANSFUSION (BLOOD CELLS, PACKED HUMAN) [Concomitant]
  4. ASPIRIN [Concomitant]

REACTIONS (17)
  - ACUTE MYELOID LEUKAEMIA [None]
  - ARTERIOSCLEROSIS CORONARY ARTERY [None]
  - BLOOD LACTATE DEHYDROGENASE INCREASED [None]
  - BLOOD PRESSURE DIASTOLIC DECREASED [None]
  - BRONCHOPNEUMONIA [None]
  - CLOSTRIDIUM DIFFICILE COLITIS [None]
  - FEBRILE NEUTROPENIA [None]
  - HEPATIC STEATOSIS [None]
  - HEPATOSPLENOMEGALY [None]
  - LYMPHADENOPATHY [None]
  - MYALGIA [None]
  - PLEURAL EFFUSION [None]
  - PULMONARY CONGESTION [None]
  - PULMONARY OEDEMA [None]
  - PULMONARY VALVE INCOMPETENCE [None]
  - SYSTEMIC INFLAMMATORY RESPONSE SYNDROME [None]
  - TRACHEITIS [None]
